FAERS Safety Report 24814129 (Version 3)
Quarter: 2025Q1

REPORT INFORMATION
  Report Type: Spontaneous
  Country: IT (occurrence: IT)
  Receive Date: 20250107
  Receipt Date: 20250130
  Transmission Date: 20250408
  Serious: Yes (Hospitalization, Other)
  Sender: AUROBINDO
  Company Number: IT-BRISTOL-MYERS SQUIBB COMPANY-2024-197023

PATIENT
  Age: 88 Year
  Sex: Female

DRUGS (1)
  1. APIXABAN [Suspect]
     Active Substance: APIXABAN
     Indication: Atrial fibrillation
     Route: 065

REACTIONS (8)
  - Haemarthrosis [Unknown]
  - Overdose [Unknown]
  - Catheter site haemorrhage [Unknown]
  - Gingival bleeding [Unknown]
  - Condition aggravated [Unknown]
  - Blood creatinine increased [Unknown]
  - Anaemia [Unknown]
  - Off label use [Unknown]
